FAERS Safety Report 10693663 (Version 1)
Quarter: 2015Q1

REPORT INFORMATION
  Report Type: Spontaneous
  Country: US (occurrence: US)
  Receive Date: 20150106
  Receipt Date: 20150106
  Transmission Date: 20150721
  Serious: Yes (Other)
  Sender: FDA-Public Use
  Company Number: PHHY2014US169697

PATIENT
  Age: 62 Year
  Sex: Female

DRUGS (2)
  1. WARFARIN [Suspect]
     Active Substance: WARFARIN
     Indication: PULMONARY EMBOLISM
     Route: 065
  2. ENOXAPARIN [Suspect]
     Active Substance: ENOXAPARIN
     Indication: COLONOSCOPY
     Route: 065

REACTIONS (10)
  - Joint dislocation [Unknown]
  - Swelling [Unknown]
  - Joint stiffness [Unknown]
  - Haemarthrosis [Unknown]
  - Pain [Not Recovered/Not Resolved]
  - Joint effusion [Unknown]
  - Muscle atrophy [Unknown]
  - Tenderness [Not Recovered/Not Resolved]
  - Tendon disorder [Recovered/Resolved]
  - Musculoskeletal pain [Not Recovered/Not Resolved]
